FAERS Safety Report 20426117 (Version 1)
Quarter: 2022Q1

REPORT INFORMATION
  Report Type: Spontaneous
  Country: US (occurrence: US)
  Receive Date: 20220204
  Receipt Date: 20220204
  Transmission Date: 20220424
  Serious: No
  Sender: FDA-Public Use
  Company Number: US-EXELIXIS-CABO-21041522

PATIENT
  Sex: Male

DRUGS (10)
  1. CABOMETYX [Suspect]
     Active Substance: CABOZANTINIB S-MALATE
     Indication: Product used for unknown indication
     Dosage: UNK
  2. NIVOLUMAB [Concomitant]
     Active Substance: NIVOLUMAB
  3. MORPHINE [Concomitant]
     Active Substance: MORPHINE
  4. DAZIDOX [Concomitant]
  5. XIFAXAN [Concomitant]
     Active Substance: RIFAXIMIN
  6. NORVASC [Concomitant]
     Active Substance: AMLODIPINE BESYLATE
  7. FLONASE [Concomitant]
     Active Substance: FLUTICASONE PROPIONATE
  8. VOLTAREN [Concomitant]
     Active Substance: DICLOFENAC SODIUM
  9. LASIX [Concomitant]
     Active Substance: FUROSEMIDE
  10. TUMS [Concomitant]
     Active Substance: CALCIUM CARBONATE

REACTIONS (1)
  - Drug intolerance [Unknown]
